FAERS Safety Report 7403149-4 (Version None)
Quarter: 2011Q2

REPORT INFORMATION
  Report Type: 
  Country: None (occurrence: None)
  Receive Date: 20110408
  Receipt Date: 20110404
  Transmission Date: 20111010
  Serious: Yes (Hospitalization)
  Sender: FDA-Public Use
  Company Number: FR-PFIZER INC-2011073579

PATIENT
  Age: 75 Year
  Sex: Female

DRUGS (11)
  1. COZAAR [Concomitant]
     Dosage: 50 MG, 1X/DAY
     Route: 048
  2. EFFERALGAN CODEINE [Concomitant]
     Dosage: 1 DF, 4X/DAY
     Route: 048
  3. OXOMEMAZINE [Concomitant]
  4. DIGOXIN [Suspect]
     Dosage: 0.25 MG, EXACT DAILY DOSE NOT SPECIFIED
     Route: 048
     Dates: end: 20101202
  5. ARTOTEC [Suspect]
     Dosage: 1 DF (0.2 MG/75 MG), 2X/DAY
     Route: 048
     Dates: end: 20101130
  6. TOPALGIC [Concomitant]
     Dosage: 200 MG, 2X/DAY
     Route: 048
  7. PREVISCAN [Concomitant]
     Dosage: 20 MG, 1X/DAY
     Route: 048
  8. CYMBALTA [Concomitant]
     Dosage: 60 MG, 1X/DAY
     Route: 048
  9. EQUANIL [Suspect]
     Dosage: 400 MG, 1X/DAY
     Route: 048
     Dates: end: 20101207
  10. LEXOMIL [Concomitant]
     Dosage: AS NEEDED
     Route: 048
  11. BISOPROLOL [Concomitant]

REACTIONS (2)
  - DISORIENTATION [None]
  - GENERAL PHYSICAL HEALTH DETERIORATION [None]
